FAERS Safety Report 22064925 (Version 1)
Quarter: 2023Q1

REPORT INFORMATION
  Report Type: Spontaneous
  Country: US (occurrence: US)
  Receive Date: 20230306
  Receipt Date: 20230306
  Transmission Date: 20230417
  Serious: No
  Sender: FDA-Public Use
  Company Number: US-BRISTOL-MYERS SQUIBB COMPANY-2023-031903

PATIENT
  Age: 77 Year
  Sex: Female

DRUGS (1)
  1. REVLIMID [Suspect]
     Active Substance: LENALIDOMIDE
     Indication: Plasma cell myeloma
     Dosage: FREQ: DAILY FOR 14 DAYS
     Route: 048
     Dates: start: 20221217, end: 20230203

REACTIONS (5)
  - Fall [Unknown]
  - Blood iron decreased [Unknown]
  - Visual impairment [Unknown]
  - Hypoaesthesia [Unknown]
  - Off label use [Unknown]
